APPROVED DRUG PRODUCT: VERAPAMIL HYDROCHLORIDE
Active Ingredient: VERAPAMIL HYDROCHLORIDE
Strength: 80MG
Dosage Form/Route: TABLET;ORAL
Application: A071483 | Product #002
Applicant: RISING PHARMA HOLDING INC
Approved: Feb 15, 1989 | RLD: No | RS: No | Type: DISCN